FAERS Safety Report 6305671-0 (Version None)
Quarter: 2009Q3

REPORT INFORMATION
  Report Type: 
  Country: None (occurrence: None)
  Receive Date: 20090807
  Receipt Date: 20090729
  Transmission Date: 20100115
  Serious: Yes (Death)
  Sender: FDA-Public Use
  Company Number: SPV1-2009-01492

PATIENT
  Age: 42 Year
  Sex: Male

DRUGS (8)
  1. ELAPRASE [Suspect]
     Indication: MUCOPOLYSACCHARIDOSIS II
     Dosage: UNK, 1X/WEEK;
     Dates: start: 20060831
  2. ALBUTEROL [Concomitant]
  3. LISINOPRIL [Concomitant]
  4. LORTADINE (LORATADINE) [Concomitant]
  5. ATORVASTATIN CALCIUM [Concomitant]
  6. MIRAPEX [Concomitant]
  7. DOXYCYCLINE (DOXYCYCLINE) [Concomitant]
  8. LYRICA [Concomitant]

REACTIONS (1)
  - RESPIRATORY FAILURE [None]
